FAERS Safety Report 4663708-9 (Version None)
Quarter: 2005Q2

REPORT INFORMATION
  Report Type: 
  Country: None (occurrence: None)
  Receive Date: 20050516
  Receipt Date: 20050503
  Transmission Date: 20051028
  Serious: No
  Sender: FDA-Public Use
  Company Number: HQWYE336224MAR05

PATIENT
  Age: 75 Year
  Sex: Male
  Weight: 82.4 kg

DRUGS (11)
  1. MYLOTARG [Suspect]
     Indication: ACUTE MYELOID LEUKAEMIA
     Dosage: SEE IMAGE
     Route: 042
     Dates: start: 20050202, end: 20050202
  2. MYLOTARG [Suspect]
     Indication: ACUTE MYELOID LEUKAEMIA
     Dosage: SEE IMAGE
     Route: 042
     Dates: start: 20050216, end: 20050216
  3. SERTRALINE HCL [Concomitant]
  4. FUROSEMIDE [Concomitant]
  5. FAMOTIDINE [Concomitant]
  6. METOCLOPRAMIDE [Concomitant]
  7. ITRACONAZOLE [Concomitant]
  8. CIPROFLOXACIN [Concomitant]
  9. ACYCLOVIR [Concomitant]
  10. IMIPENEM (IMIPENEM) [Concomitant]
  11. OXYCODONE (OXYCODONE) [Concomitant]

REACTIONS (6)
  - ALANINE AMINOTRANSFERASE INCREASED [None]
  - ASPARTATE AMINOTRANSFERASE INCREASED [None]
  - BLOOD ALKALINE PHOSPHATASE INCREASED [None]
  - BLOOD GLUCOSE INCREASED [None]
  - BLOOD POTASSIUM DECREASED [None]
  - BLOOD POTASSIUM INCREASED [None]
